FAERS Safety Report 8589630-3 (Version None)
Quarter: 2012Q3

REPORT INFORMATION
  Report Type: 
  Country: None (occurrence: None)
  Receive Date: 20120813
  Receipt Date: 20120807
  Transmission Date: 20120928
  Serious: Yes (Other)
  Sender: FDA-Public Use
  Company Number: US-PFIZER INC-2012193209

PATIENT
  Age: 46 Year
  Sex: Male
  Weight: 117 kg

DRUGS (2)
  1. LYRICA [Suspect]
     Indication: PAIN
     Dosage: 150 MG, 3X/DAY
     Dates: start: 20110101
  2. AVALIDE [Concomitant]
     Indication: HYPERTENSION
     Dosage: 12.5/150 MG, DAILY

REACTIONS (2)
  - BACK DISORDER [None]
  - DRUG INEFFECTIVE [None]
